FAERS Safety Report 9742731 (Version 1)
Quarter: 2013Q4

REPORT INFORMATION
  Report Type: Spontaneous
  Country: US (occurrence: US)
  Receive Date: 20131210
  Receipt Date: 20131210
  Transmission Date: 20140711
  Serious: No
  Sender: FDA-Public Use
  Company Number: US-GILEAD-2009-0025830

PATIENT
  Age: 66 Year
  Sex: Male
  Weight: 158.76 kg

DRUGS (8)
  1. LETAIRIS [Suspect]
     Indication: PULMONARY ARTERIAL HYPERTENSION
  2. FUROSEMIDE [Concomitant]
  3. RAMIPRIL [Concomitant]
  4. LEVOXYL [Concomitant]
  5. WARFARIN [Concomitant]
  6. VIAGRA [Concomitant]
  7. PANTOPRAZOLE [Concomitant]
  8. POTASSIUM CHLORIDE [Concomitant]

REACTIONS (1)
  - Fluid retention [Not Recovered/Not Resolved]
